FAERS Safety Report 12654979 (Version 1)
Quarter: 2016Q3

REPORT INFORMATION
  Report Type: Spontaneous
  Country: US (occurrence: None)
  Receive Date: 20160815
  Receipt Date: 20160815
  Transmission Date: 20161109
  Serious: Yes (Other)
  Sender: FDA-Public Use
  Company Number: None

PATIENT
  Sex: Male

DRUGS (1)
  1. PROGRAF [Suspect]
     Active Substance: TACROLIMUS\TACROLIMUS ANHYDROUS
     Indication: TRANSPLANT
     Dosage: TWO CAPSULES TWO TIMES A DAY BY MOUTH
     Route: 048
     Dates: start: 20160623

REACTIONS (3)
  - Blood glucose abnormal [None]
  - Hyperkeratosis [None]
  - Basal cell carcinoma [None]
